FAERS Safety Report 8870415 (Version 1)
Quarter: 2012Q4

REPORT INFORMATION
  Report Type: 
  Country: US (occurrence: US)
  Receive Date: 20121026
  Receipt Date: 20121026
  Transmission Date: 20130627
  Serious: No
  Sender: FDA-Public Use
  Company Number: US-AMGEN-USASP2012043458

PATIENT
  Age: 43 Year
  Sex: Female
  Weight: 133.33 kg

DRUGS (18)
  1. ENBREL [Suspect]
     Indication: PRODUCT USED FOR UNKNOWN INDICATION
     Dosage: 50 mg/ml, qwk
     Route: 058
  2. CELEBREX [Concomitant]
     Dosage: 50 mg, UNK
  3. METHOTREXATE [Concomitant]
     Dosage: 2.5 mg, UNK
  4. ALOE VERA [Concomitant]
  5. VITAMIN E                          /00110501/ [Concomitant]
     Dosage: 1000 unit, UNK
  6. MULTIVITAMIN                       /00097801/ [Concomitant]
  7. CHROMIUM PICOLINAT [Concomitant]
     Dosage: 200 mug, UNK
  8. VITAMIN B COMPLEX [Concomitant]
     Dosage: UNK
  9. ZINC [Concomitant]
     Dosage: 30 mg, UNK
  10. FOLIC ACID [Concomitant]
     Dosage: UNK
  11. VITAMIN A /00056001/ [Concomitant]
     Dosage: UNK
  12. OMEGA 3                            /01334101/ [Concomitant]
     Dosage: 1000 mg, UNK
  13. SELENIUM                           /01743003/ [Concomitant]
     Dosage: 200 mug, UNK
  14. VITAMIN B 6 [Concomitant]
     Dosage: 50 mg, UNK
  15. VITAMIN B 12 [Concomitant]
     Dosage: 250 mug, UNK
  16. VITAMIN D /00107901/ [Concomitant]
     Dosage: 400 UNK, UNK
  17. CHONDROITIN SODIUM SULFATE W/GLUCOSAMINE HCL [Concomitant]
  18. TRIAMTEREEN/HYDROCHLOOTTHIAZIDE [Concomitant]
     Dosage: 37.5-25

REACTIONS (4)
  - Injection site erythema [Unknown]
  - Injection site pruritus [Unknown]
  - Injection site swelling [Unknown]
  - Injection site reaction [Unknown]
